FAERS Safety Report 7826581-3 (Version None)
Quarter: 2011Q4

REPORT INFORMATION
  Report Type: 
  Country: None (occurrence: None)
  Receive Date: 20111020
  Receipt Date: 20111007
  Transmission Date: 20120403
  Serious: Yes (Hospitalization)
  Sender: FDA-Public Use
  Company Number: HU-ELI_LILLY_AND_COMPANY-HU201110002330

PATIENT
  Age: 36 Year
  Sex: Female

DRUGS (2)
  1. ZYPREXA [Suspect]
     Dosage: UNK UNK, UNKNOWN
     Dates: end: 20110923
  2. OLANZAPINE [Suspect]
     Indication: PARANOID PERSONALITY DISORDER
     Dosage: 300 MG, MONTHLY (1/M)
     Route: 030

REACTIONS (3)
  - BLOOD PROLACTIN INCREASED [None]
  - OFF LABEL USE [None]
  - HOSPITALISATION [None]
